FAERS Safety Report 5894449-8 (Version None)
Quarter: 2008Q3

REPORT INFORMATION
  Report Type: 
  Country: None (occurrence: None)
  Receive Date: 20080924
  Receipt Date: 20080911
  Transmission Date: 20090109
  Serious: Yes (Other)
  Sender: FDA-Public Use
  Company Number: US-BAYER-USA-2002-001953

PATIENT
  Age: 30 Year
  Sex: Female
  Weight: 68 kg

DRUGS (3)
  1. BETASERON [Suspect]
     Indication: MULTIPLE SCLEROSIS
     Route: 058
  2. PROZAC [Concomitant]
     Indication: DEPRESSION
     Route: 048
     Dates: start: 20020601
  3. ALESSE [Concomitant]
     Indication: CONTRACEPTION
     Route: 048
     Dates: start: 20020601

REACTIONS (4)
  - DEPRESSION [None]
  - HAEMATOCHEZIA [None]
  - RECTAL CANCER [None]
  - WEIGHT DECREASED [None]
